FAERS Safety Report 8336911-4 (Version None)
Quarter: 2012Q2

REPORT INFORMATION
  Report Type: 
  Country: None (occurrence: None)
  Receive Date: 20120501
  Receipt Date: 20120416
  Transmission Date: 20120825
  Serious: Yes (Other)
  Sender: FDA-Public Use
  Company Number: DSA_56239_2012

PATIENT
  Sex: Female

DRUGS (2)
  1. WELLBUTRIN XL [Suspect]
     Indication: DEPRESSION
     Dosage: (DF ORAL)
     Route: 048
     Dates: start: 20100101, end: 20100101
  2. WELLBUTRIN SR [Suspect]
     Indication: DEPRESSION
     Dosage: (DF ORAL)
     Route: 048

REACTIONS (2)
  - PRURITUS [None]
  - URTICARIA [None]
